FAERS Safety Report 17769385 (Version 1)
Quarter: 2020Q2

REPORT INFORMATION
  Report Type: Spontaneous
  Country: PL (occurrence: PL)
  Receive Date: 20200512
  Receipt Date: 20200512
  Transmission Date: 20200714
  Serious: Yes (Hospitalization, Other)
  Sender: FDA-Public Use
  Company Number: PL-GLAXOSMITHKLINE-PL2020076077

PATIENT
  Age: 18 Year
  Sex: Male

DRUGS (6)
  1. LAMOTRIGINE. [Suspect]
     Active Substance: LAMOTRIGINE
     Indication: MOOD SWINGS
     Dosage: 150 MG, PER DAY
     Route: 065
  2. LITHIUM CARBONATE. [Suspect]
     Active Substance: LITHIUM CARBONATE
     Dosage: 1000 MG, PER DAY
     Route: 065
  3. PERAZINE [Suspect]
     Active Substance: PERAZINE
     Indication: MANIA
     Dosage: 100 MG, PER DAY
     Route: 065
  4. OLANZAPINE. [Suspect]
     Active Substance: OLANZAPINE
     Indication: MANIA
     Dosage: 10 MG, PER DAY
     Route: 065
  5. VALPROATE SODIUM. [Suspect]
     Active Substance: VALPROATE SODIUM
     Indication: PRODUCT USED FOR UNKNOWN INDICATION
     Dosage: 900 MG, PER DAY
     Route: 065
  6. LITHIUM CARBONATE. [Suspect]
     Active Substance: LITHIUM CARBONATE
     Indication: PRODUCT USED FOR UNKNOWN INDICATION
     Dosage: 750 MG, PER DAY
     Route: 065

REACTIONS (8)
  - Dermatitis allergic [Unknown]
  - Leukopenia [Unknown]
  - Liver function test increased [Unknown]
  - Tremor [Unknown]
  - Increased appetite [Recovering/Resolving]
  - Drug ineffective [Recovering/Resolving]
  - Somnolence [Recovering/Resolving]
  - Weight increased [Unknown]
